FAERS Safety Report 20093490 (Version 1)
Quarter: 2021Q4

REPORT INFORMATION
  Report Type: Spontaneous
  Country: PL (occurrence: None)
  Receive Date: 20211121
  Receipt Date: 20211121
  Transmission Date: 20220303
  Serious: Yes (Death)
  Sender: FDA-Public Use
  Company Number: None

PATIENT
  Age: 63 Year
  Sex: Female
  Weight: 58 kg

DRUGS (9)
  1. PERJETA [Suspect]
     Active Substance: PERTUZUMAB
     Indication: HER2 positive breast cancer
     Dosage: IN 2ND AND 3RD CYCLE DOSE WAS REDUCED DUE TO TYPICAL ADVERSE REACTIONS IN 1ST AND 2ND CYCLE: WEAKNES
     Route: 042
     Dates: start: 20210618, end: 20210811
  2. DOCETAXEL [Suspect]
     Active Substance: DOCETAXEL
     Indication: HER2 positive breast cancer
     Dosage: IN 2ND AND 3RD CYCLE DOSE WAS REDUCED DUE TO TYPICAL ADVERSE REACTIONS IN 1ST AND 2ND CYCLE: WEAKNES
     Route: 042
     Dates: start: 20210618, end: 20210811
  3. CARBOPLATIN [Suspect]
     Active Substance: CARBOPLATIN
     Indication: HER2 positive breast cancer
     Dosage: IN 2ND AND 3RD CYCLE DOSE WAS REDUCED DUE TO TYPICAL ADVERSE REACTIONS IN 1ST AND 2ND CYCLE: WEAKNES
     Route: 042
     Dates: start: 20210618, end: 20210811
  4. TRAZIMERA [Suspect]
     Active Substance: TRASTUZUMAB-QYYP
     Indication: HER2 positive breast cancer
     Dosage: IN 2ND AND 3RD CYCLE DOSE WAS REDUCED DUE TO TYPICAL ADVERSE REACTIONS IN 1ST AND 2ND CYCLE: WEAKNES
     Route: 042
     Dates: start: 20210618, end: 20210811
  5. ONDANSETRON [Concomitant]
     Active Substance: ONDANSETRON
     Indication: Prophylaxis of nausea and vomiting
     Dosage: ANTIEMETIC PROPHYLAXIS ON THE DAY OF CHEMOTHERAPY
     Route: 042
     Dates: start: 20210618, end: 20210811
  6. CLEMASTINE [Concomitant]
     Active Substance: CLEMASTINE
     Indication: Breast cancer
     Dosage: BEFORE DRUGS INFUSION ON THE DAY OF TCHP
     Route: 042
     Dates: start: 20210618, end: 20210811
  7. DEXAMETHASONE [Concomitant]
     Active Substance: DEXAMETHASONE
     Indication: Breast cancer
     Dosage: DOSE: ?- 1 TABLET 8 MG THE DAY BEFORE CHEMOTHERAPY?- 3 TABLETS ON THE DAY OF CHEMOTHERAPY?- 2 TABLET
     Dates: start: 20210617, end: 20210812
  8. BISORATIO [Concomitant]
     Indication: Hypertension
  9. PEGFILGRASTIM [Concomitant]
     Active Substance: PEGFILGRASTIM
     Indication: Chemotherapy side effect prophylaxis
     Dosage: DRUG ADMINISTERED DAY AFTER ENDING TCHP INFUSION.
     Route: 058
     Dates: start: 20210618, end: 20210811

REACTIONS (1)
  - Diverticulitis [Fatal]

NARRATIVE: CASE EVENT DATE: 20210908
